FAERS Safety Report 5731389-9 (Version None)
Quarter: 2008Q2

REPORT INFORMATION
  Report Type: 
  Country: None (occurrence: None)
  Receive Date: 20080508
  Receipt Date: 20080428
  Transmission Date: 20081010
  Serious: Yes (Hospitalization)
  Sender: FDA-Public Use
  Company Number: AR-JNJFOC-20080400005

PATIENT
  Sex: Male
  Weight: 74 kg

DRUGS (10)
  1. TMC125 [Suspect]
     Route: 048
  2. TMC125 [Suspect]
     Indication: HIV INFECTION
     Route: 048
  3. PREZISTA [Suspect]
     Route: 048
  4. PREZISTA [Suspect]
     Indication: HIV INFECTION
     Route: 048
  5. RITONAVIR [Suspect]
     Indication: HIV INFECTION
     Route: 048
  6. COMBIVIR [Concomitant]
     Indication: HIV INFECTION
     Route: 048
  7. TENOFOVIR [Concomitant]
     Indication: HIV INFECTION
     Route: 048
  8. ENFUVIRTIDE [Concomitant]
     Indication: HIV INFECTION
     Route: 058
  9. VALPROIC ACID [Concomitant]
  10. CLONAZEPAM [Concomitant]

REACTIONS (1)
  - DEPRESSION [None]
